FAERS Safety Report 6027448-6 (Version None)
Quarter: 2009Q1

REPORT INFORMATION
  Report Type: 
  Country: None (occurrence: None)
  Receive Date: 20090105
  Receipt Date: 20081230
  Transmission Date: 20090719
  Serious: Yes (Death, Life-Threatening, Hospitalization)
  Sender: FDA-Public Use
  Company Number: US-SANOFI-SYNTHELABO-F01200801821

PATIENT
  Sex: Female
  Weight: 36.9 kg

DRUGS (16)
  1. PERCOCET [Concomitant]
     Dosage: 5/325 MG EVERY SIX HOURS
     Route: 048
  2. LOPERAMIDE HCL [Concomitant]
     Route: 048
  3. LOMOTIL [Concomitant]
     Route: 048
  4. CRESTOR [Concomitant]
     Route: 048
  5. AMLODIPINE [Concomitant]
     Route: 048
  6. TRAMADOL HCL [Concomitant]
     Dosage: EVERY 6 HOURS
  7. MORPHINE SULFATE [Concomitant]
     Route: 048
  8. DIOVAN [Concomitant]
     Dosage: 160/25 MG
     Route: 048
  9. ZOFRAN [Concomitant]
     Dosage: THREE TIMES A DAY
  10. MS CONTIN [Concomitant]
     Route: 048
  11. K-TAB [Concomitant]
     Route: 048
  12. SERTRALINE [Concomitant]
  13. OMEPRAZOLE [Concomitant]
  14. CETUXIMAB [Suspect]
     Route: 041
     Dates: start: 20081105, end: 20081105
  15. GEMCITABINE [Suspect]
     Dosage: D1, Q2W
     Route: 041
     Dates: start: 20081029, end: 20081029
  16. OXALIPLATIN [Suspect]
     Indication: PANCREATIC CARCINOMA
     Dosage: D2,Q2W
     Route: 041
     Dates: start: 20081030, end: 20081030

REACTIONS (6)
  - ACUTE RESPIRATORY DISTRESS SYNDROME [None]
  - FRACTURE [None]
  - METABOLIC ACIDOSIS [None]
  - PLEURAL EFFUSION [None]
  - PULMONARY OEDEMA [None]
  - RESPIRATORY FAILURE [None]
